FAERS Safety Report 8761909 (Version 2)
Quarter: 2012Q4

REPORT INFORMATION
  Report Type: 
  Country: IT (occurrence: IT)
  Receive Date: 20120829
  Receipt Date: 20120910
  Transmission Date: 20130627
  Serious: Yes (Hospitalization, Other)
  Sender: FDA-Public Use
  Company Number: IT-PFIZER INC-2012210832

PATIENT
  Age: 87 Year
  Sex: Male

DRUGS (12)
  1. ZOLOFT [Suspect]
     Dosage: 50 mg, 1x/day
     Route: 048
     Dates: start: 20120727, end: 20120802
  2. REMERON [Suspect]
     Dosage: 30 mg, 1x/day
     Route: 048
     Dates: start: 20120727, end: 20120802
  3. SODIUM BICARBONATE [Concomitant]
     Route: 048
  4. ACETYLSALICYLIC ACID [Concomitant]
     Route: 048
  5. ALLOPURINOL [Concomitant]
     Route: 048
  6. IRON [Concomitant]
     Route: 048
  7. ALMARYTM [Concomitant]
     Route: 048
  8. NORVASC [Concomitant]
     Route: 048
  9. LASIX [Concomitant]
     Dosage: 37.5 mg, UNK
     Route: 048
  10. ROCALTROL [Concomitant]
     Route: 048
  11. FOLINA [Concomitant]
     Route: 048
  12. TACHIPIRINA [Concomitant]
     Route: 048

REACTIONS (3)
  - Torsade de pointes [Not Recovered/Not Resolved]
  - Cardiac arrest [Not Recovered/Not Resolved]
  - Hypokalaemia [Unknown]
